FAERS Safety Report 8188445-8 (Version None)
Quarter: 2012Q1

REPORT INFORMATION
  Report Type: 
  Country: None (occurrence: None)
  Receive Date: 20120306
  Receipt Date: 20120228
  Transmission Date: 20120608
  Serious: Yes (Hospitalization)
  Sender: FDA-Public Use
  Company Number: PHHO2012NL002291

PATIENT
  Sex: Male
  Weight: 78 kg

DRUGS (13)
  1. LIPITOR [Concomitant]
     Indication: BLOOD CHOLESTEROL INCREASED
     Dosage: 1X10 MG
     Dates: start: 20110714
  2. NEORAL [Suspect]
     Indication: RENAL TRANSPLANT
     Dosage: 175 MG, BID
     Route: 048
     Dates: start: 20110803, end: 20120211
  3. MYFORTIC [Suspect]
     Dosage: UNK
     Route: 048
     Dates: start: 20120222
  4. PREDNISOLONE [Suspect]
     Indication: RENAL TRANSPLANT
     Dosage: 10 MG, BID
     Route: 048
     Dates: start: 20110717, end: 20120211
  5. FUROSEMIDE [Concomitant]
     Indication: RESPIRATORY RATE INCREASED
     Dosage: 1X200
     Dates: start: 20110810
  6. VALCYTE [Concomitant]
     Indication: PROPHYLAXIS
     Dosage: 1X450UNK
     Dates: start: 20110714
  7. MYFORTIC [Suspect]
     Indication: RENAL TRANSPLANT
     Dosage: 360 MG, BID
     Route: 048
     Dates: start: 20110724, end: 20120211
  8. NEORAL [Suspect]
     Dosage: UNK
     Route: 048
     Dates: start: 20120222
  9. PREDNISOLONE [Suspect]
     Dosage: UNK
     Dates: start: 20120222
  10. ETALPHA [Concomitant]
     Dosage: ^1/4 U/L^
     Dates: start: 20110810
  11. AMLODIPINE [Concomitant]
     Indication: RESPIRATORY RATE INCREASED
     Dosage: 1X10
     Dates: start: 20110810
  12. CALCIUM [Concomitant]
     Indication: BONE DISORDER
     Dosage: UNK
     Dates: start: 20110810
  13. ENALAPRIL MALEATE [Concomitant]

REACTIONS (4)
  - PYELONEPHRITIS [None]
  - ESCHERICHIA URINARY TRACT INFECTION [None]
  - OEDEMA PERIPHERAL [None]
  - HYDRONEPHROSIS [None]
